FAERS Safety Report 17935154 (Version 4)
Quarter: 2023Q2

REPORT INFORMATION
  Report Type: Spontaneous
  Country: US (occurrence: US)
  Receive Date: 20200624
  Receipt Date: 20230613
  Transmission Date: 20230721
  Serious: Yes (Other)
  Sender: FDA-Public Use
  Company Number: US-PFIZER INC-2020243611

PATIENT
  Age: 71 Year
  Sex: Female

DRUGS (2)
  1. XELJANZ XR [Suspect]
     Active Substance: TOFACITINIB CITRATE
     Indication: Rheumatoid arthritis
     Dosage: 11 MG, DAILY
     Route: 048
     Dates: start: 201801, end: 202210
  2. XELJANZ XR [Suspect]
     Active Substance: TOFACITINIB CITRATE
     Indication: Colitis ulcerative
     Dosage: 11 MG, DAILY
     Route: 048
     Dates: start: 201912

REACTIONS (11)
  - Oral surgery [Recovering/Resolving]
  - Endodontic procedure [Unknown]
  - Therapeutic product effect incomplete [Recovering/Resolving]
  - Nasopharyngitis [Recovering/Resolving]
  - Gingivitis [Unknown]
  - Gingival disorder [Unknown]
  - Dental caries [Unknown]
  - Arthralgia [Not Recovered/Not Resolved]
  - Tooth impacted [Unknown]
  - Post procedural infection [Unknown]
  - Condition aggravated [Recovering/Resolving]

NARRATIVE: CASE EVENT DATE: 20200101
